FAERS Safety Report 12367297 (Version 2)
Quarter: 2017Q2

REPORT INFORMATION
  Report Type: Spontaneous
  Country: US (occurrence: US)
  Receive Date: 20160513
  Receipt Date: 20170503
  Transmission Date: 20170830
  Serious: No
  Sender: FDA-Public Use
  Company Number: US-JNJFOC-20160423721

PATIENT
  Sex: Male

DRUGS (4)
  1. RISPERDAL [Suspect]
     Active Substance: RISPERIDONE
     Indication: ABNORMAL BEHAVIOUR
     Dosage: VARYING DOSES
     Route: 048
     Dates: start: 200609, end: 200709
  2. RISPERIDONE. [Suspect]
     Active Substance: RISPERIDONE
     Indication: PRODUCT USED FOR UNKNOWN INDICATION
     Route: 048
  3. RISPERDAL [Suspect]
     Active Substance: RISPERIDONE
     Indication: ABNORMAL BEHAVIOUR
     Dosage: VARYING DOSES
     Route: 048
     Dates: start: 200709, end: 200911
  4. RISPERDAL [Suspect]
     Active Substance: RISPERIDONE
     Indication: ABNORMAL BEHAVIOUR
     Dosage: VARYING DOSES
     Route: 048
     Dates: start: 200801, end: 200912

REACTIONS (1)
  - Gynaecomastia [Unknown]

NARRATIVE: CASE EVENT DATE: 2014
